FAERS Safety Report 6633610-1 (Version None)
Quarter: 2010Q1

REPORT INFORMATION
  Report Type: 
  Country: None (occurrence: None)
  Receive Date: 20100312
  Receipt Date: 20100306
  Transmission Date: 20100710
  Serious: Yes (Death)
  Sender: FDA-Public Use
  Company Number: US-GILEAD-2010-0027524

PATIENT
  Sex: Male

DRUGS (11)
  1. LETAIRIS [Suspect]
     Indication: PULMONARY HYPERTENSION
     Route: 048
     Dates: start: 20100210, end: 20100303
  2. LASIX [Concomitant]
  3. WARFARIN SODIUM [Concomitant]
  4. ACETAZOLAMIDE [Concomitant]
  5. ADVAIR DISKUS 100/50 [Concomitant]
  6. COMBIVENT [Concomitant]
  7. DIGOXIN [Concomitant]
  8. FLOMAX [Concomitant]
  9. INSULIN [Concomitant]
  10. LOVASTATIN [Concomitant]
  11. REVATIO [Concomitant]

REACTIONS (1)
  - DEATH [None]
